FAERS Safety Report 5345336-5 (Version None)
Quarter: 2007Q2

REPORT INFORMATION
  Report Type: 
  Country: None (occurrence: None)
  Receive Date: 20070601
  Receipt Date: 20070601
  Transmission Date: 20071010
  Serious: Yes (Hospitalization)
  Sender: FDA-Public Use
  Company Number: None

PATIENT
  Sex: Female
  Weight: 70.3075 kg

DRUGS (1)
  1. YASMIN [Suspect]
     Indication: CONTRACEPTION
     Dosage: FOUR OR FIVE YEARS

REACTIONS (14)
  - ACTIVITIES OF DAILY LIVING IMPAIRED [None]
  - ARTHRALGIA [None]
  - CONDITION AGGRAVATED [None]
  - GAIT DISTURBANCE [None]
  - MIGRAINE [None]
  - MUSCULOSKELETAL STIFFNESS [None]
  - MYALGIA [None]
  - PAIN IN EXTREMITY [None]
  - PARALYSIS [None]
  - PYREXIA [None]
  - SENSATION OF HEAVINESS [None]
  - SINUSITIS [None]
  - TENDERNESS [None]
  - WHITE BLOOD CELL COUNT INCREASED [None]
